FAERS Safety Report 8391629-7 (Version None)
Quarter: 2012Q2

REPORT INFORMATION
  Report Type: 
  Country: None (occurrence: None)
  Receive Date: 20120529
  Receipt Date: 20120516
  Transmission Date: 20120825
  Serious: Yes (Hospitalization, Other)
  Sender: FDA-Public Use
  Company Number: US-SANOFI-AVENTIS-2012SA035154

PATIENT
  Age: 40 Year
  Sex: Female

DRUGS (4)
  1. AMBIEN [Suspect]
     Indication: INSOMNIA
  2. MS CONTIN [Concomitant]
     Indication: PAIN
  3. AMBIEN CR [Suspect]
     Indication: INSOMNIA
  4. ALL OTHER THERAPEUTIC PRODUCTS [Suspect]
     Dates: start: 20120501

REACTIONS (7)
  - INSOMNIA [None]
  - CONVULSION [None]
  - DRUG DEPENDENCE [None]
  - INCORRECT DOSE ADMINISTERED [None]
  - BREAST MASS [None]
  - DRUG INEFFECTIVE [None]
  - FATIGUE [None]
